FAERS Safety Report 7778418 (Version 4)
Quarter: 2013Q1

REPORT INFORMATION
  Report Type: Report from Study
  Country: JP (occurrence: JP)
  Receive Date: 20110128
  Receipt Date: 20130130
  Transmission Date: 20140127
  Serious: Yes (Other)
  Sender: FDA-Public Use
  Company Number: PHHY2011JP03199

PATIENT
  Sex: 0
  Weight: 65 kg

DRUGS (25)
  1. AFINITOR [Suspect]
     Indication: METASTATIC RENAL CELL CARCINOMA
     Dosage: 10 MG, DAILY
     Route: 048
     Dates: start: 20100628, end: 20100803
  2. AFINITOR [Suspect]
     Dosage: 10 MG, DAILY
     Route: 048
     Dates: start: 20100824
  3. ZOMETA [Concomitant]
     Indication: METASTATIC RENAL CELL CARCINOMA
     Dosage: UNK UKN, UNK
     Dates: start: 20100628
  4. SUNITINIB MALATE [Concomitant]
     Dosage: 50 MG, UNK
     Route: 048
     Dates: start: 20090720, end: 20100607
  5. ATELEC [Concomitant]
     Dosage: 10 MG, UNK
     Route: 048
     Dates: start: 20100628
  6. ATELEC [Concomitant]
     Dosage: 10 MG, UNK
     Route: 048
  7. LOXONIN [Concomitant]
     Dosage: 180 MG, UNK
     Route: 048
     Dates: start: 20100628
  8. LOXONIN [Concomitant]
     Dosage: 180 MG, UNK
     Route: 048
  9. SELBEX [Concomitant]
     Dosage: 150 MG, UNK
     Route: 048
     Dates: start: 20100628
  10. SELBEX [Concomitant]
     Dosage: 150 MG, UNK
     Route: 048
  11. BLOPRESS [Concomitant]
     Dosage: 8 MG, UNK
     Route: 048
     Dates: start: 20100628
  12. BLOPRESS [Concomitant]
     Dosage: 8 MG, UNK
     Route: 048
  13. BLOPRESS [Concomitant]
     Dosage: 5 MG, UNK
     Route: 048
  14. AMLODIN [Concomitant]
     Dosage: 5 MG, UNK
     Route: 048
     Dates: start: 20100628
  15. AMLODIN [Concomitant]
     Dosage: 5 MG, UNK
     Route: 048
  16. OXYCONTIN [Concomitant]
     Indication: METASTATIC RENAL CELL CARCINOMA
     Dosage: 10 MG, UNK
     Route: 048
     Dates: start: 20100628
  17. OXYCONTIN [Concomitant]
     Dosage: 10 MG, UNK
     Route: 048
  18. CARDENALIN [Concomitant]
     Indication: METASTATIC RENAL CELL CARCINOMA
     Dosage: 4 MG, UNK
     Route: 048
     Dates: start: 20100628
  19. CARDENALIN [Concomitant]
     Dosage: 4 MG, UNK
     Route: 048
  20. NEO-MINOPHAGEN C [Concomitant]
     Dosage: 20 ML, UNK
     Route: 042
     Dates: start: 20100802, end: 20100805
  21. CELESTAMIN [Concomitant]
     Indication: PROPHYLAXIS
     Dosage: 2 DF, UNK
     Route: 048
  22. ALLEGRA [Concomitant]
     Indication: PROPHYLAXIS
     Dosage: 20 ML, UNK
  23. GLYCYRON [Concomitant]
     Indication: PROPHYLAXIS
     Dosage: 2 DF, UNK
     Route: 048
  24. DUROTEP [Concomitant]
     Indication: METASTATIC RENAL CELL CARCINOMA
     Dosage: 2.1 MG, UNK
     Route: 048
     Dates: start: 20101108
  25. SENNOSIDE [Concomitant]
     Dosage: 24 MG, UNK
     Route: 048
     Dates: start: 20101108

REACTIONS (5)
  - Erythema multiforme [Unknown]
  - Erythema [Recovered/Resolved]
  - Pruritus generalised [Recovered/Resolved]
  - Neoplasm progression [Not Recovered/Not Resolved]
  - Malignant neoplasm progression [Not Recovered/Not Resolved]
